FAERS Safety Report 8333000-X (Version None)
Quarter: 2012Q2

REPORT INFORMATION
  Report Type: 
  Country: None (occurrence: None)
  Receive Date: 20120503
  Receipt Date: 20120425
  Transmission Date: 20120825
  Serious: Yes (Hospitalization, Other)
  Sender: FDA-Public Use
  Company Number: PHHY2012BR036190

PATIENT
  Sex: Male
  Weight: 87 kg

DRUGS (6)
  1. DIOVAN [Suspect]
     Indication: HYPERTENSION
     Dosage: 1 DF (80 MG) A DAY
     Route: 048
     Dates: start: 20100101
  2. LEVOTHYROXINE SODIUM [Concomitant]
     Indication: THYROID DISORDER
     Dosage: 1 DF, IN THE MORNING
     Route: 048
  3. ALDACTONE [Concomitant]
     Dosage: 1 DF, A DAY
     Route: 048
     Dates: start: 20110801
  4. GLIMEPIRIDE [Concomitant]
     Indication: DIABETES MELLITUS
     Dosage: 1 DF, A DAY
     Route: 048
  5. SLOW-K [Concomitant]
     Indication: ELECTROLYTE SUBSTITUTION THERAPY
     Dosage: 1 TABLET IN THE MORNING AND 1 TABLET IN THE EVENING
     Route: 048
  6. HYDROCHLOROTHIAZIDE [Concomitant]
     Indication: DIURETIC THERAPY
     Dosage: ONE TABLET IN THE MORNING AND ONE TABLET IN THE AFTERNOON
     Route: 048

REACTIONS (4)
  - CONVULSION [None]
  - BLOOD POTASSIUM DECREASED [None]
  - SYNCOPE [None]
  - CARDIOMEGALY [None]
